FAERS Safety Report 8273792-1 (Version None)
Quarter: 2012Q2

REPORT INFORMATION
  Report Type: 
  Country: None (occurrence: None)
  Receive Date: 20120411
  Receipt Date: 20120403
  Transmission Date: 20120825
  Serious: Yes (Hospitalization)
  Sender: FDA-Public Use
  Company Number: FR-SANOFI-AVENTIS-2012SA022992

PATIENT
  Age: 58 Year
  Sex: Female

DRUGS (9)
  1. SOLU-MEDROL [Concomitant]
     Route: 042
     Dates: start: 20110901, end: 20111118
  2. TAXOTERE [Suspect]
     Indication: BREAST CANCER
     Route: 042
     Dates: start: 20111007, end: 20111118
  3. TRASTUZUMAB [Suspect]
     Indication: BREAST CANCER
     Route: 042
     Dates: start: 20111007, end: 20111118
  4. EMEND [Suspect]
     Route: 048
     Dates: start: 20110901, end: 20111120
  5. LEVOTHYROXINE SODIUM [Concomitant]
     Indication: HYPOTHYROIDISM
     Route: 048
  6. ZOLOFT [Concomitant]
  7. ONDANSETRON [Suspect]
     Route: 042
     Dates: start: 20110901, end: 20111120
  8. VICTAN [Concomitant]
  9. DEPAKOTE [Concomitant]

REACTIONS (1)
  - CEREBELLAR SYNDROME [None]
